FAERS Safety Report 26142246 (Version 1)
Quarter: 2025Q4

REPORT INFORMATION
  Report Type: Spontaneous
  Country: IN (occurrence: IN)
  Receive Date: 20251210
  Receipt Date: 20251210
  Transmission Date: 20260118
  Serious: Yes (Hospitalization, Other)
  Sender: NOVARTIS
  Company Number: IN-002147023-NVSC2025IN187507

PATIENT
  Sex: Male

DRUGS (2)
  1. IMATINIB [Suspect]
     Active Substance: IMATINIB
     Indication: Chronic myeloid leukaemia
     Dosage: UNK
     Route: 048
  2. NILOTINIB [Suspect]
     Active Substance: NILOTINIB
     Indication: Chronic myeloid leukaemia
     Dosage: UNK
     Route: 048
     Dates: start: 202510

REACTIONS (4)
  - Pyrexia [Recovered/Resolved]
  - Cytopenia [Not Recovered/Not Resolved]
  - Chronic myeloid leukaemia [Unknown]
  - Malignant neoplasm progression [Unknown]
